FAERS Safety Report 9115605 (Version 1)
Quarter: 2013Q1

REPORT INFORMATION
  Report Type: Spontaneous
  Country: US (occurrence: US)
  Receive Date: 20130225
  Receipt Date: 20130225
  Transmission Date: 20140127
  Serious: Yes (Hospitalization)
  Sender: FDA-Public Use
  Company Number: US-BRISTOL-MYERS SQUIBB COMPANY-16345001

PATIENT
  Age: 76 Year
  Sex: Female
  Weight: 68 kg

DRUGS (12)
  1. KENALOG-10 INJ [Suspect]
     Dosage: ALSO TAKEN 60MG
     Route: 014
     Dates: start: 20120106
  2. BUPIVACAINE [Suspect]
     Dosage: 0.5% BUPIVACAINE, 1ML
     Route: 014
  3. CLONAZEPAM [Concomitant]
     Dosage: CLONAZEPAM 0.5MG 3 TIMES PER DAY AS NEEDED
  4. FLUOXETINE [Concomitant]
  5. GABAPENTIN [Concomitant]
  6. VICODIN [Concomitant]
     Dosage: 1 DF:VICODIN 5/500 1 TABLET EVERY 6 HOURS AS NEEDED
  7. LITHIUM [Concomitant]
     Dosage: LITHIUM EXTENDED-RELEASE 300MG DAILY
  8. ASACOL [Concomitant]
  9. PRILOSEC [Concomitant]
  10. PERPHENAZINE [Concomitant]
     Dosage: PERPHENAZINE 8MG NIGHTLY
  11. SIMVASTATIN [Concomitant]
     Dosage: NIGHTLY
  12. ZOLPIDEM [Concomitant]
     Dosage: ZOLPIDEM 10MG NIGHTLY AS NEEDED

REACTIONS (1)
  - Substance-induced psychotic disorder [Unknown]
